FAERS Safety Report 4927736-8 (Version None)
Quarter: 2006Q1

REPORT INFORMATION
  Report Type: 
  Country: None (occurrence: None)
  Receive Date: 20060222
  Receipt Date: 20060214
  Transmission Date: 20060701
  Serious: Yes (Death)
  Sender: FDA-Public Use
  Company Number: USA-2006-0023501

PATIENT
  Age: 41 Year
  Sex: Male
  Weight: 102 kg

DRUGS (6)
  1. OXYCONTIN [Suspect]
     Indication: PAIN
     Dosage: 40 MG
  2. PAXIL [Suspect]
     Indication: DEPRESSION
  3. MIRTAZAPINE [Suspect]
  4. PROMETHAZINE [Suspect]
  5. HYDROCODONE BITARTRATE [Suspect]
  6. ANTIBIOTICS [Concomitant]

REACTIONS (8)
  - ARTERIOSCLEROSIS [None]
  - ARTERIOSCLEROSIS CORONARY ARTERY [None]
  - CEREBRAL ARTERIOSCLEROSIS [None]
  - CYANOSIS [None]
  - INFLUENZA [None]
  - LOSS OF CONSCIOUSNESS [None]
  - MULTIPLE DRUG OVERDOSE ACCIDENTAL [None]
  - PULMONARY OEDEMA [None]
